FAERS Safety Report 17843262 (Version 1)
Quarter: 2020Q2

REPORT INFORMATION
  Report Type: Spontaneous
  Country: RU (occurrence: RU)
  Receive Date: 20200530
  Receipt Date: 20200530
  Transmission Date: 20200714
  Serious: Yes (Other)
  Sender: FDA-Public Use
  Company Number: RU-ROCHE-2608532

PATIENT

DRUGS (1)
  1. TOCILIZUMAB. [Suspect]
     Active Substance: TOCILIZUMAB
     Indication: COVID-19
     Route: 065

REACTIONS (5)
  - Febrile neutropenia [Unknown]
  - Off label use [Unknown]
  - Leukopenia [Unknown]
  - Lymphopenia [Unknown]
  - Intentional product use issue [Unknown]
